FAERS Safety Report 19734121 (Version 1)
Quarter: 2021Q3

REPORT INFORMATION
  Report Type: Report from Study
  Country: FR (occurrence: FR)
  Receive Date: 20210824
  Receipt Date: 20210824
  Transmission Date: 20211014
  Serious: Yes (Life-Threatening, Hospitalization)
  Sender: FDA-Public Use
  Company Number: FR-TEVA-2021-FR-1944466

PATIENT
  Age: 3 Year
  Sex: Female

DRUGS (1)
  1. PREGABALIN. [Suspect]
     Active Substance: PREGABALIN
     Indication: ACCIDENTAL EXPOSURE TO PRODUCT BY CHILD
     Dosage: FOUR IMMEDIATE?RELEASE CAPSULES OF 75MG PREGABALIN (300 MG; 21.3 MG/KG)
     Route: 048

REACTIONS (4)
  - Accidental exposure to product by child [Recovered/Resolved]
  - Miosis [Recovered/Resolved]
  - Ataxia [Recovered/Resolved]
  - Coma [Recovered/Resolved]
